FAERS Safety Report 6609446-4 (Version None)
Quarter: 2010Q1

REPORT INFORMATION
  Report Type: 
  Country: None (occurrence: None)
  Receive Date: 20100223
  Receipt Date: 20100210
  Transmission Date: 20100710
  Serious: Yes (Other)
  Sender: FDA-Public Use
  Company Number: DSA_42622_2010

PATIENT

DRUGS (5)
  1. BUPROPION HCL [Suspect]
     Indication: DRUG USE FOR UNKNOWN INDICATION
     Dosage: 300 MG QD ORAL
     Route: 048
  2. ATENOLOL [Concomitant]
  3. RAMIPRIL [Concomitant]
  4. NICOTINIC ACID [Concomitant]
  5. MIRTAZAPINE [Concomitant]

REACTIONS (1)
  - TRANSAMINASES INCREASED [None]
